FAERS Safety Report 16102361 (Version 1)
Quarter: 2019Q1

REPORT INFORMATION
  Report Type: Spontaneous
  Country: GB (occurrence: GB)
  Receive Date: 20190321
  Receipt Date: 20190321
  Transmission Date: 20190418
  Serious: Yes (Hospitalization, Other)
  Sender: FDA-Public Use
  Company Number: PHHY2019GB059003

PATIENT
  Age: 56 Year
  Sex: Female

DRUGS (14)
  1. KISQALI [Suspect]
     Active Substance: RIBOCICLIB
     Dosage: 400 MG, QD (ON HOLD FOR 7 DAYS IN AUG 2018)
     Route: 065
  2. MIRENA [Concomitant]
     Active Substance: LEVONORGESTREL
     Indication: PRODUCT USED FOR UNKNOWN INDICATION
     Dosage: COIL
     Route: 065
  3. KISQALI [Suspect]
     Active Substance: RIBOCICLIB
     Dosage: 400 MG, QD
     Route: 065
     Dates: start: 20180419
  4. LETROZOLE. [Suspect]
     Active Substance: LETROZOLE
     Dosage: UNK
     Route: 065
     Dates: start: 20180314
  5. KISQALI [Suspect]
     Active Substance: RIBOCICLIB
     Indication: BREAST CANCER
     Dosage: 600 MG, QD
     Route: 065
     Dates: start: 20171228, end: 20180122
  6. KISQALI [Suspect]
     Active Substance: RIBOCICLIB
     Dosage: 600 MG, QD
     Route: 065
     Dates: start: 20180206, end: 20180307
  7. LETROZOLE. [Suspect]
     Active Substance: LETROZOLE
     Dosage: UNK
     Route: 065
     Dates: start: 20180206, end: 20180307
  8. KISQALI [Suspect]
     Active Substance: RIBOCICLIB
     Dosage: 600 MG, QD
     Route: 065
     Dates: start: 20180314
  9. KISQALI [Suspect]
     Active Substance: RIBOCICLIB
     Dosage: 400 MG, QD
     Route: 065
     Dates: start: 20180727
  10. LETROZOLE. [Suspect]
     Active Substance: LETROZOLE
     Indication: BREAST CANCER
     Dosage: UNK
     Route: 065
     Dates: start: 20171228, end: 20180122
  11. LETROZOLE. [Suspect]
     Active Substance: LETROZOLE
     Dosage: UNK
     Route: 065
     Dates: start: 20180419
  12. LETROZOLE. [Suspect]
     Active Substance: LETROZOLE
     Dosage: UNK
     Route: 065
     Dates: start: 20180727
  13. LETROZOLE. [Suspect]
     Active Substance: LETROZOLE
     Dosage: ON HOLD FOR 7 DAYS IN AUG 2018
     Route: 065
  14. ZOLADEX [Suspect]
     Active Substance: GOSERELIN ACETATE
     Indication: BREAST CANCER
     Route: 065

REACTIONS (30)
  - Blood potassium decreased [Unknown]
  - Oral pain [Unknown]
  - Decreased appetite [Recovering/Resolving]
  - Haemoglobin decreased [Unknown]
  - Blood sodium decreased [Recovering/Resolving]
  - White blood cell count decreased [Unknown]
  - General physical health deterioration [Unknown]
  - Nausea [Recovered/Resolved]
  - Metastases to liver [Unknown]
  - Diarrhoea [Unknown]
  - Lethargy [Recovering/Resolving]
  - Constipation [Recovering/Resolving]
  - Metastases to bone [Unknown]
  - Malaise [Recovering/Resolving]
  - Lower respiratory tract infection [Unknown]
  - Neutropenia [Unknown]
  - Platelet count increased [Unknown]
  - Urinary tract infection [Unknown]
  - Hypercalcaemia [Unknown]
  - Spinal fracture [Unknown]
  - Malignant neoplasm progression [Unknown]
  - Hypocalcaemia [Unknown]
  - Mean cell volume increased [Unknown]
  - Liver function test abnormal [Unknown]
  - Nausea [Recovering/Resolving]
  - Skin infection [Recovered/Resolved]
  - Eosinophil count decreased [Unknown]
  - Chest pain [Recovering/Resolving]
  - Vomiting [Recovering/Resolving]
  - Red blood cell count decreased [Unknown]

NARRATIVE: CASE EVENT DATE: 20180118
